FAERS Safety Report 14109909 (Version 1)
Quarter: 2017Q4

REPORT INFORMATION
  Report Type: Spontaneous
  Country: US (occurrence: US)
  Receive Date: 20171020
  Receipt Date: 20171020
  Transmission Date: 20180321
  Serious: No
  Sender: FDA-Public Use
  Company Number: US-TEVA-749599ACC

PATIENT
  Age: 39 Year
  Sex: Female
  Weight: 59.02 kg

DRUGS (2)
  1. EQ TIOCONAZOLE 1DAY [Suspect]
     Active Substance: TIOCONAZOLE
     Indication: FUNGAL INFECTION
     Dosage: USE ONCE DAILY AT NIGHT
  2. EQ TIOCONAZOLE 1DAY [Suspect]
     Active Substance: TIOCONAZOLE
     Indication: FUNGAL INFECTION

REACTIONS (1)
  - Drug ineffective [Unknown]

NARRATIVE: CASE EVENT DATE: 20170228
